FAERS Safety Report 4905840-8 (Version None)
Quarter: 2006Q1

REPORT INFORMATION
  Report Type: 
  Country: None (occurrence: None)
  Receive Date: 20060208
  Receipt Date: 20050509
  Transmission Date: 20060701
  Serious: Yes (Hospitalization, Disabling)
  Sender: FDA-Public Use
  Company Number: US-MERCK-0505USA01110

PATIENT
  Age: 58 Year
  Sex: Female
  Weight: 61 kg

DRUGS (1)
  1. VIOXX [Suspect]
     Indication: PAIN
     Route: 048
     Dates: start: 20000401, end: 20040801

REACTIONS (6)
  - ACUTE CORONARY SYNDROME [None]
  - BRONCHOSPASM [None]
  - CORONARY ARTERY THROMBOSIS [None]
  - MYOCARDIAL INFARCTION [None]
  - PLEURAL EFFUSION [None]
  - UPPER RESPIRATORY TRACT INFECTION [None]
